FAERS Safety Report 6983892-1 (Version None)
Quarter: 2010Q3

REPORT INFORMATION
  Report Type: 
  Country: None (occurrence: None)
  Receive Date: 20100914
  Receipt Date: 20090309
  Transmission Date: 20110219
  Serious: No
  Sender: FDA-Public Use
  Company Number: US-WYE-H08522309

PATIENT
  Age: 80 Year
  Sex: Male
  Weight: 70.37 kg

DRUGS (1)
  1. ADVIL LIQUI-GELS [Suspect]
     Indication: GOUT
     Dosage: 1 CAPSULE EVERY 6 HOURS
     Route: 048
     Dates: start: 20090307

REACTIONS (2)
  - CONDITION AGGRAVATED [None]
  - HYPERTENSION [None]
